FAERS Safety Report 17690121 (Version 1)
Quarter: 2020Q2

REPORT INFORMATION
  Report Type: Spontaneous
  Country: US (occurrence: US)
  Receive Date: 20200420
  Receipt Date: 20200420
  Transmission Date: 20200714
  Serious: Yes (Hospitalization)
  Sender: FDA-Public Use
  Company Number: None

PATIENT
  Sex: Male

DRUGS (2)
  1. HYDROXYCHLOROQUINE [Suspect]
     Active Substance: HYDROXYCHLOROQUINE
     Dosage: 400MG BID FOR 1 DAY THEN 200BID FOR 1 DAY BID PO X 1 DAY(S)
     Route: 048
     Dates: start: 20200413, end: 20200414
  2. AZITHROMYCIN ANHYDROUS. [Suspect]
     Active Substance: AZITHROMYCIN ANHYDROUS
     Dosage: 500MG QD X 1 250MG DAILY FOR 3 DAYS QD PO X 3 DAY(S)
     Dates: start: 20200411, end: 20200414

REACTIONS (1)
  - Electrocardiogram QT prolonged [None]
